FAERS Safety Report 4706804-X (Version None)
Quarter: 2005Q3

REPORT INFORMATION
  Report Type: 
  Country: None (occurrence: None)
  Receive Date: 20050705
  Receipt Date: 20050623
  Transmission Date: 20060218
  Serious: Yes (Death)
  Sender: FDA-Public Use
  Company Number: 2005092635

PATIENT
  Sex: Female
  Weight: 74.8435 kg

DRUGS (4)
  1. BEXTRA [Suspect]
     Indication: ARTHRALGIA
     Dosage: ORAL
     Route: 048
  2. LASIX [Concomitant]
  3. VALIUM [Concomitant]
  4. PENICILLIN [Concomitant]

REACTIONS (3)
  - BODY HEIGHT DECREASED [None]
  - CARDIAC FAILURE CONGESTIVE [None]
  - WEIGHT DECREASED [None]
